FAERS Safety Report 9830438 (Version 1)
Quarter: 2014Q1

REPORT INFORMATION
  Report Type: Spontaneous
  Country: US (occurrence: US)
  Receive Date: 20140120
  Receipt Date: 20140120
  Transmission Date: 20141002
  Serious: Yes (Other)
  Sender: FDA-Public Use
  Company Number: US-JNJFOC-20140105974

PATIENT
  Age: 74 Year
  Sex: Female
  Weight: 113.4 kg

DRUGS (2)
  1. XARELTO [Suspect]
     Indication: CEREBROVASCULAR ACCIDENT PROPHYLAXIS
     Route: 048
     Dates: start: 201210
  2. XARELTO [Suspect]
     Indication: ATRIAL FIBRILLATION
     Route: 048
     Dates: start: 201210

REACTIONS (6)
  - Vaginal haemorrhage [Unknown]
  - Sputum discoloured [Unknown]
  - Epistaxis [Unknown]
  - Incorrect dose administered [Unknown]
  - Drug dose omission [Unknown]
  - Wrong technique in drug usage process [Unknown]
